FAERS Safety Report 8300981-X (Version None)
Quarter: 2012Q2

REPORT INFORMATION
  Report Type: 
  Country: None (occurrence: None)
  Receive Date: 20120420
  Receipt Date: 20120411
  Transmission Date: 20120825
  Serious: Yes (Other)
  Sender: FDA-Public Use
  Company Number: US-BRISTOL-MYERS SQUIBB COMPANY-15357783

PATIENT
  Age: 70 Year
  Sex: Female

DRUGS (3)
  1. AMBIEN [Concomitant]
  2. LORAZEPAM [Concomitant]
  3. ABILIFY [Suspect]
     Dosage: STARTED A MONTH AGO
     Dates: end: 20101001

REACTIONS (1)
  - DEMENTIA [None]
